FAERS Safety Report 9337296 (Version 1)
Quarter: 2013Q2

REPORT INFORMATION
  Report Type: Spontaneous
  Country: DK (occurrence: DK)
  Receive Date: 20130607
  Receipt Date: 20130607
  Transmission Date: 20140414
  Serious: Yes (Other)
  Sender: FDA-Public Use
  Company Number: DK-009507513-2012SP004787

PATIENT
  Age: 48 Year
  Sex: Male
  Weight: 75 kg

DRUGS (1)
  1. DIPROSPAN [Suspect]
     Indication: ROTATOR CUFF SYNDROME
     Dosage: DOSIS: 2 ML D. 9.8.11 OG 2 ML 6.09.11, STYRKE: 7 MG/ML
     Route: 050
     Dates: start: 20110809, end: 20110906

REACTIONS (19)
  - Visual impairment [Recovered/Resolved]
  - Headache [Not Recovered/Not Resolved]
  - Sleep disorder [Not Recovered/Not Resolved]
  - Anger [Not Recovered/Not Resolved]
  - Constipation [Recovered/Resolved]
  - Eye pain [Recovered/Resolved]
  - Renal impairment [Recovered/Resolved]
  - Arthralgia [Recovered/Resolved]
  - Back pain [Recovered/Resolved]
  - Sensory disturbance [Recovered/Resolved]
  - Depression [Not Recovered/Not Resolved]
  - Lip swelling [Recovered/Resolved]
  - Back pain [Recovered/Resolved]
  - Pain in extremity [Recovered/Resolved]
  - Skin reaction [Recovered/Resolved]
  - Conjunctivitis [Recovered/Resolved]
  - Peripheral coldness [Not Recovered/Not Resolved]
  - Depressed mood [Not Recovered/Not Resolved]
  - Arthralgia [Not Recovered/Not Resolved]
